FAERS Safety Report 24070635 (Version 1)
Quarter: 2024Q3

REPORT INFORMATION
  Report Type: Spontaneous
  Country: ZA (occurrence: ZA)
  Receive Date: 20240710
  Receipt Date: 20240710
  Transmission Date: 20241017
  Serious: No
  Sender: ROCHE
  Company Number: ZA-ROCHE-3543693

PATIENT
  Age: 32 Year
  Sex: Male

DRUGS (2)
  1. ALECENSA [Suspect]
     Active Substance: ALECTINIB HYDROCHLORIDE
     Indication: Small cell lung cancer
     Dosage: STARTED ON 300 MG AGAIN IN DECEMBER TO END JANUARY
     Route: 065
  2. ALECENSA [Suspect]
     Active Substance: ALECTINIB HYDROCHLORIDE
     Route: 065

REACTIONS (2)
  - Paternal exposure during pregnancy [Unknown]
  - Paternal exposure before pregnancy [Unknown]
